FAERS Safety Report 9898992 (Version 3)
Quarter: 2014Q1

REPORT INFORMATION
  Report Type: Report from Study
  Country: CA (occurrence: CA)
  Receive Date: 20140214
  Receipt Date: 20140317
  Transmission Date: 20141002
  Serious: Yes (Hospitalization)
  Sender: FDA-Public Use
  Company Number: CA-IPSEN BIOPHARMACEUTICALS, INC.-2014-0758

PATIENT
  Age: 25 Year
  Sex: Male

DRUGS (2)
  1. LANREOTIDE AUTOGEL 120 MG [Suspect]
     Indication: ACROMEGALY
     Dosage: 120MG
     Route: 058
     Dates: start: 20130219
  2. LANREOTIDE AUTOGEL 120 MG [Suspect]
     Dosage: 90MG
     Route: 058

REACTIONS (2)
  - Abdominal infection [Recovered/Resolved]
  - Hyperglycaemia [Recovering/Resolving]
